FAERS Safety Report 6253344-5 (Version None)
Quarter: 2009Q3

REPORT INFORMATION
  Report Type: 
  Country: None (occurrence: None)
  Receive Date: 20090701
  Receipt Date: 20090623
  Transmission Date: 20100115
  Serious: Yes (Hospitalization)
  Sender: FDA-Public Use
  Company Number: PHEH2009US06590

PATIENT
  Age: 71 Year
  Sex: Female
  Weight: 61.224 kg

DRUGS (1)
  1. RECLAST [Suspect]
     Dosage: 5 MG YEARLY
     Route: 042
     Dates: start: 20090615

REACTIONS (3)
  - CHEST DISCOMFORT [None]
  - PARAESTHESIA [None]
  - THROAT TIGHTNESS [None]
